FAERS Safety Report 11029727 (Version 1)
Quarter: 2015Q2

REPORT INFORMATION
  Report Type: Spontaneous
  Country: US (occurrence: None)
  Receive Date: 20150414
  Receipt Date: 20150414
  Transmission Date: 20150821
  Serious: No
  Sender: FDA-Public Use
  Company Number: None

PATIENT
  Age: 52 Year
  Sex: Female

DRUGS (1)
  1. NEXAVAR [Suspect]
     Active Substance: SORAFENIB
     Indication: BREAST CANCER
     Dosage: 200MG  TAKE 2 TABLETS TWICE A DAY  ORAL
     Route: 048
     Dates: start: 20150317, end: 20150406

REACTIONS (1)
  - Rash [None]

NARRATIVE: CASE EVENT DATE: 20150406
